FAERS Safety Report 15946736 (Version 4)
Quarter: 2019Q2

REPORT INFORMATION
  Report Type: Spontaneous
  Country: US (occurrence: US)
  Receive Date: 20190211
  Receipt Date: 20190411
  Transmission Date: 20190711
  Serious: No
  Sender: FDA-Public Use
  Company Number: US-PFIZER INC-2019057084

PATIENT
  Age: 68 Year
  Sex: Male

DRUGS (2)
  1. GABAPENTIN. [Suspect]
     Active Substance: GABAPENTIN
     Dosage: 600 MG, 1X/DAY
     Route: 048
     Dates: end: 20160823
  2. GABAPENTIN. [Suspect]
     Active Substance: GABAPENTIN
     Indication: NEUROPATHY PERIPHERAL
     Dosage: 100 MG, 1X/DAY
     Route: 048
     Dates: start: 20130416

REACTIONS (7)
  - Drug hypersensitivity [Unknown]
  - Feeling abnormal [Unknown]
  - Memory impairment [Unknown]
  - Visual impairment [Unknown]
  - Fatigue [Unknown]
  - Nausea [Unknown]
  - Product use in unapproved indication [Unknown]
